FAERS Safety Report 7889242-0 (Version None)
Quarter: 2011Q4

REPORT INFORMATION
  Report Type: 
  Country: None (occurrence: None)
  Receive Date: 20111103
  Receipt Date: 20111026
  Transmission Date: 20120403
  Serious: Yes (Hospitalization, Disabling, Other)
  Sender: FDA-Public Use
  Company Number: US-MERCK-1105USA01491

PATIENT
  Age: 58 Year
  Sex: Female
  Weight: 66 kg

DRUGS (4)
  1. MEDROXYPROGESTERONE ACETATE [Concomitant]
     Route: 048
     Dates: start: 20010101
  2. ACTONEL [Suspect]
     Indication: OSTEOPOROSIS PROPHYLAXIS
     Route: 048
     Dates: start: 20080420, end: 20100101
  3. ALENDRONATE SODIUM [Suspect]
     Indication: OSTEOPOROSIS PROPHYLAXIS
     Route: 048
     Dates: start: 20080212, end: 20080101
  4. FOSAMAX [Suspect]
     Indication: OSTEOPOROSIS PROPHYLAXIS
     Route: 048
     Dates: start: 20010129, end: 20080320

REACTIONS (19)
  - OSTEONECROSIS OF JAW [None]
  - CHRONIC RESPIRATORY DISEASE [None]
  - DRUG HYPERSENSITIVITY [None]
  - DIARRHOEA [None]
  - ORAL INFECTION [None]
  - OSTEOPENIA [None]
  - ABDOMINAL PAIN UPPER [None]
  - LYMPHADENOPATHY [None]
  - TOOTH ABSCESS [None]
  - PEPTIC ULCER [None]
  - APPENDIX DISORDER [None]
  - BLOOD CHOLESTEROL INCREASED [None]
  - CELLULITIS [None]
  - FISTULA DISCHARGE [None]
  - HYPERLIPIDAEMIA [None]
  - HYPERTENSION [None]
  - GASTROOESOPHAGEAL REFLUX DISEASE [None]
  - DENTAL CARIES [None]
  - OSTEOMYELITIS [None]
